FAERS Safety Report 15427196 (Version 1)
Quarter: 2018Q3

REPORT INFORMATION
  Report Type: Spontaneous
  Country: US (occurrence: US)
  Receive Date: 20180925
  Receipt Date: 20180925
  Transmission Date: 20181010
  Serious: No
  Sender: FDA-Public Use
  Company Number: US-INDIVIOR LIMITED-INDV-110619-2018

PATIENT
  Age: 33 Year
  Sex: Female

DRUGS (2)
  1. HEROIN [Suspect]
     Active Substance: DIAMORPHINE
     Indication: PRODUCT USED FOR UNKNOWN INDICATION
     Dosage: UNK
     Route: 051
     Dates: end: 201804
  2. SUBOXONE [Suspect]
     Active Substance: BUPRENORPHINE HYDROCHLORIDE\NALOXONE HYDROCHLORIDE
     Indication: DRUG DEPENDENCE
     Dosage: 8 MG, QD
     Route: 060
     Dates: start: 20180425

REACTIONS (12)
  - Dysstasia [Unknown]
  - Oral administration complication [Unknown]
  - Malaise [Unknown]
  - Asthenia [Unknown]
  - Dry mouth [Unknown]
  - Abdominal discomfort [Unknown]
  - Vomiting [Unknown]
  - Bone pain [Unknown]
  - Feeling of body temperature change [Unknown]
  - Gait inability [Unknown]
  - Loss of personal independence in daily activities [Unknown]
  - Arthralgia [Unknown]

NARRATIVE: CASE EVENT DATE: 201804
